FAERS Safety Report 12989115 (Version 3)
Quarter: 2017Q1

REPORT INFORMATION
  Report Type: Spontaneous
  Country: JP (occurrence: JP)
  Receive Date: 20161201
  Receipt Date: 20170126
  Transmission Date: 20170428
  Serious: Yes (Other)
  Sender: FDA-Public Use
  Company Number: JP-AMGEN-JPNSP2016168292

PATIENT
  Age: 75 Year
  Sex: Female

DRUGS (4)
  1. BONALON [Concomitant]
     Active Substance: ALENDRONATE SODIUM
     Indication: OSTEOPOROSIS
     Dosage: 5 MG, UNK
     Route: 048
     Dates: start: 2007, end: 20131120
  2. PRALIA [Suspect]
     Active Substance: DENOSUMAB
     Indication: OSTEOPOROSIS
     Dosage: 60 MG, UNK
     Route: 058
     Dates: start: 20140212, end: 20150325
  3. PREDNISOLONE. [Concomitant]
     Active Substance: PREDNISOLONE
     Indication: RHEUMATOID ARTHRITIS
     Dosage: 2 MG, UNK
     Route: 048
  4. ABATACEPT [Concomitant]
     Active Substance: ABATACEPT
     Indication: RHEUMATOID ARTHRITIS
     Dosage: 250 MG, UNK
     Route: 050

REACTIONS (1)
  - Osteonecrosis of jaw [Unknown]

NARRATIVE: CASE EVENT DATE: 20151009
